FAERS Safety Report 15176988 (Version 1)
Quarter: 2018Q3

REPORT INFORMATION
  Report Type: Report from Study
  Country: US (occurrence: US)
  Receive Date: 20180720
  Receipt Date: 20180720
  Transmission Date: 20181010
  Serious: No
  Sender: FDA-Public Use
  Company Number: US-AMGEN-USASL2018081416

PATIENT
  Age: 62 Year
  Sex: Male

DRUGS (2)
  1. REPATHA [Suspect]
     Active Substance: EVOLOCUMAB
     Indication: HYPERCHOLESTEROLAEMIA
     Dosage: 140 MG, Q2WK
     Route: 065
     Dates: start: 201805
  2. PLAVIX [Concomitant]
     Active Substance: CLOPIDOGREL BISULFATE
     Dosage: UNK
     Dates: start: 201805

REACTIONS (5)
  - Injection site bruising [Unknown]
  - Paranasal sinus hypersecretion [Unknown]
  - Injection site vesicles [Recovered/Resolved]
  - Throat irritation [Unknown]
  - Contusion [Unknown]

NARRATIVE: CASE EVENT DATE: 2018
